FAERS Safety Report 6641895-0 (Version None)
Quarter: 2010Q1

REPORT INFORMATION
  Report Type: 
  Country: None (occurrence: None)
  Receive Date: 20100319
  Receipt Date: 20100316
  Transmission Date: 20100710
  Serious: Yes (Other)
  Sender: FDA-Public Use
  Company Number: US-SANOFI-AVENTIS-2010SA004853

PATIENT
  Age: 69 Year
  Sex: Male
  Weight: 90.72 kg

DRUGS (9)
  1. LANTUS [Suspect]
     Dosage: DOSE:25 UNIT(S)
     Route: 058
     Dates: start: 20050801
  2. OPTICLICK [Suspect]
     Dates: start: 20050101
  3. ALL OTHER THERAPEUTIC PRODUCTS [Concomitant]
     Dosage: NOW RECEIVING CHEMOTHERAPY LIBOBIX( NOT SPELLING ) NAME PROVIDED BY CONSUMER.START DATE 6 WK AGO
     Dates: start: 20100101
  4. ERBITUX [Concomitant]
     Dosage: TAKEN 6-7 MONTHS AGO ;DOSE NOT PROVIDED
     Dates: start: 20090801, end: 20091201
  5. LISINOPRIL [Concomitant]
     Indication: BLOOD PRESSURE
  6. ONE-A-DAY [Concomitant]
  7. PRAVASTATIN [Concomitant]
  8. NEURONTIN [Concomitant]
     Dosage: 1AM AND 2 PM
  9. FLEXERIL [Concomitant]

REACTIONS (1)
  - MACULAR DEGENERATION [None]
